FAERS Safety Report 9881558 (Version 1)
Quarter: 2014Q1

REPORT INFORMATION
  Report Type: Spontaneous
  Country: FR (occurrence: FR)
  Receive Date: 20140207
  Receipt Date: 20140207
  Transmission Date: 20141002
  Serious: Yes (Hospitalization)
  Sender: FDA-Public Use
  Company Number: FR-JNJFOC-20140117775

PATIENT
  Age: 55 Year
  Sex: Female

DRUGS (10)
  1. RISPERDAL [Suspect]
     Indication: PRODUCT USED FOR UNKNOWN INDICATION
     Route: 048
  2. RISPERDAL [Suspect]
     Indication: PRODUCT USED FOR UNKNOWN INDICATION
     Route: 048
     Dates: end: 2013
  3. RISPERDAL [Suspect]
     Indication: PRODUCT USED FOR UNKNOWN INDICATION
     Route: 048
     Dates: start: 2013
  4. INEXIUM [Suspect]
     Indication: PROPHYLAXIS
     Route: 048
     Dates: start: 20130507, end: 20130709
  5. PERINDOPRIL [Concomitant]
     Route: 065
  6. ZOLPIDEM [Concomitant]
     Route: 065
  7. GARDENAL [Concomitant]
     Route: 065
  8. ATARAX [Concomitant]
     Route: 065
  9. METFORMIN [Concomitant]
     Route: 065
  10. DOMPERIDONE [Concomitant]
     Route: 065

REACTIONS (4)
  - Hyponatraemia [Recovered/Resolved]
  - Frontotemporal dementia [Recovering/Resolving]
  - Alcoholism [Unknown]
  - Extrapyramidal disorder [Recovering/Resolving]
